FAERS Safety Report 13274119 (Version 3)
Quarter: 2017Q2

REPORT INFORMATION
  Report Type: Spontaneous
  Country: US (occurrence: US)
  Receive Date: 20170227
  Receipt Date: 20170425
  Transmission Date: 20170830
  Serious: Yes (Other)
  Sender: FDA-Public Use
  Company Number: US-BAXALTA-2017BLT001133

PATIENT
  Age: 56 Year
  Sex: Female
  Weight: 63 kg

DRUGS (7)
  1. GAMUNEX [Concomitant]
     Active Substance: HUMAN IMMUNOGLOBULIN G
     Indication: PRIMARY IMMUNODEFICIENCY SYNDROME
  2. GAMMAGARD [Concomitant]
     Active Substance: HUMAN IMMUNOGLOBULIN G
     Indication: PRIMARY IMMUNODEFICIENCY SYNDROME
  3. CORTEF [Concomitant]
     Active Substance: HYDROCORTISONE
     Indication: ADDISON^S DISEASE
  4. ADVIL [Concomitant]
     Active Substance: IBUPROFEN
     Indication: PREMEDICATION
  5. CUVITRU [Suspect]
     Active Substance: HUMAN IMMUNOGLOBULIN G
     Indication: PRIMARY IMMUNODEFICIENCY SYNDROME
     Dosage: 1 G, 1X A DAY
     Route: 058
     Dates: start: 20170202, end: 20170205
  6. BENADRYL [Concomitant]
     Active Substance: DIPHENHYDRAMINE HYDROCHLORIDE
     Indication: PREMEDICATION
  7. ZITHROMAX [Concomitant]
     Active Substance: AZITHROMYCIN DIHYDRATE
     Indication: PROPHYLAXIS

REACTIONS (5)
  - Dizziness [Recovered/Resolved]
  - Spinal pain [Recovered/Resolved]
  - Meningitis [Recovered/Resolved]
  - Disturbance in attention [Recovered/Resolved]
  - Mental impairment [Recovered/Resolved]

NARRATIVE: CASE EVENT DATE: 20170204
